FAERS Safety Report 5580822-4 (Version None)
Quarter: 2008Q1

REPORT INFORMATION
  Report Type: 
  Country: None (occurrence: None)
  Receive Date: 20080103
  Receipt Date: 20071207
  Transmission Date: 20080703
  Serious: No
  Sender: FDA-Public Use
  Company Number: US-BOEHRINGER INGELHEIM PHARMACEUTICALS, INC.-2007-BP-26011BP

PATIENT
  Sex: Female

DRUGS (5)
  1. SPIRIVA [Suspect]
     Indication: EMPHYSEMA
     Route: 055
     Dates: start: 20050801
  2. ATROVENT HFA [Concomitant]
  3. PROVENTIL [Concomitant]
  4. ADVAIR DISKUS 100/50 [Concomitant]
  5. OXYGEN [Concomitant]

REACTIONS (1)
  - DYSPNOEA [None]
